FAERS Safety Report 8066797-7 (Version None)
Quarter: 2012Q1

REPORT INFORMATION
  Report Type: 
  Country: None (occurrence: None)
  Receive Date: 20120124
  Receipt Date: 20120119
  Transmission Date: 20120608
  Serious: Yes (Hospitalization)
  Sender: FDA-Public Use
  Company Number: DE-ROCHE-1022983

PATIENT
  Sex: Male
  Weight: 79 kg

DRUGS (14)
  1. AVASTIN [Suspect]
     Indication: LUNG ADENOCARCINOMA
     Route: 042
     Dates: start: 20111207
  2. CYANOCOBALAMIN [Concomitant]
     Route: 051
     Dates: start: 20111104, end: 20111104
  3. PEMETREXED DISODIUM [Suspect]
     Indication: LUNG ADENOCARCINOMA
     Route: 042
     Dates: start: 20111207
  4. FOLIC ACID [Concomitant]
     Route: 048
  5. APREPITANT [Concomitant]
     Indication: PROPHYLAXIS
     Dosage: 80-125 MG
     Route: 048
  6. SYMBICORT [Concomitant]
     Indication: CHRONIC OBSTRUCTIVE PULMONARY DISEASE
  7. CISPLATIN [Suspect]
     Indication: LUNG ADENOCARCINOMA
     Route: 042
     Dates: start: 20111207
  8. PREDNISOLONE [Concomitant]
     Indication: CHRONIC OBSTRUCTIVE PULMONARY DISEASE
     Route: 048
  9. BERODUAL [Concomitant]
     Indication: CHRONIC OBSTRUCTIVE PULMONARY DISEASE
     Route: 055
  10. GRANISETRON [Concomitant]
     Indication: PROPHYLAXIS
     Route: 048
  11. GABAPENTIN [Concomitant]
     Route: 048
  12. DEXAMETHASONE SODIUM PHOSPHATE [Concomitant]
     Indication: PROPHYLAXIS
     Dosage: 4-8 MG
     Route: 048
  13. LOPERAMIDE [Concomitant]
     Route: 048
  14. METOCLOPRAMIDE [Concomitant]
     Route: 048

REACTIONS (5)
  - GENERAL PHYSICAL HEALTH DETERIORATION [None]
  - PYREXIA [None]
  - PAIN [None]
  - PROTEINURIA [None]
  - NAUSEA [None]
